FAERS Safety Report 5164056-3 (Version None)
Quarter: 2006Q4

REPORT INFORMATION
  Report Type: 
  Country: None (occurrence: None)
  Receive Date: 20061124
  Receipt Date: 20061109
  Transmission Date: 20070319
  Serious: Yes (Death)
  Sender: FDA-Public Use
  Company Number: 2006138298

PATIENT
  Age: 33 Year

DRUGS (2)
  1. ALPRAZOLAM [Suspect]
  2. METHADONE HCL [Suspect]

REACTIONS (3)
  - CARDIAC ARREST [None]
  - DRUG ABUSER [None]
  - RESPIRATORY ARREST [None]
